FAERS Safety Report 7577959-7 (Version None)
Quarter: 2011Q2

REPORT INFORMATION
  Report Type: 
  Country: None (occurrence: None)
  Receive Date: 20110628
  Receipt Date: 20110615
  Transmission Date: 20111010
  Serious: Yes (Other)
  Sender: FDA-Public Use
  Company Number: JP-ROCHE-784739

PATIENT
  Sex: Female

DRUGS (6)
  1. TOCILIZUMAB [Suspect]
     Indication: RHEUMATOID ARTHRITIS
     Route: 042
     Dates: start: 20090130, end: 20101126
  2. PREDNISOLONE [Concomitant]
     Route: 048
  3. GLAKAY [Concomitant]
     Route: 048
  4. AZULFIDINE [Concomitant]
     Route: 048
  5. ALFAROL [Concomitant]
     Route: 048
  6. LANSOPRAZOLE [Concomitant]
     Route: 048

REACTIONS (1)
  - DIALYSIS [None]
